FAERS Safety Report 25076780 (Version 2)
Quarter: 2025Q1

REPORT INFORMATION
  Report Type: Report from Study
  Country: US (occurrence: US)
  Receive Date: 20250313
  Receipt Date: 20250326
  Transmission Date: 20250408
  Serious: Yes (Hospitalization, Other)
  Sender: ABBVIE
  Company Number: US-ABBVIE-6165918

PATIENT
  Age: 72 Year
  Sex: Male
  Weight: 78.93 kg

DRUGS (2)
  1. SKYRIZI [Suspect]
     Active Substance: RISANKIZUMAB-RZAA
     Indication: Crohn^s disease
     Route: 058
     Dates: start: 20240625
  2. SKYRIZI [Suspect]
     Active Substance: RISANKIZUMAB-RZAA
     Indication: Crohn^s disease
     Route: 042

REACTIONS (6)
  - Cholelithiasis [Recovered/Resolved]
  - Necrosis [Recovered/Resolved]
  - Pain [Recovered/Resolved]
  - Device issue [Unknown]
  - Abdominal pain [Unknown]
  - Hypertension [Unknown]

NARRATIVE: CASE EVENT DATE: 20250201
